FAERS Safety Report 7905387 (Version 3)
Quarter: 2013Q4

REPORT INFORMATION
  Report Type: Report from Study
  Country: US (occurrence: US)
  Receive Date: 20110419
  Receipt Date: 20131008
  Transmission Date: 20140711
  Serious: Yes (Hospitalization)
  Sender: FDA-Public Use
  Company Number: US-ALLERGAN-1105328US

PATIENT
  Age: 78 Year
  Sex: Female
  Weight: 89.8 kg

DRUGS (11)
  1. BOTULINUM TOXIN TYPE A - GENERAL (9060X) [Suspect]
     Indication: TORTICOLLIS
     Dosage: 110 UNITS, SINGLE
     Route: 030
     Dates: start: 20110316, end: 20110316
  2. KLONOPIN [Suspect]
     Indication: CONVULSION
     Dosage: 0.5 MG, BID
     Route: 048
     Dates: start: 20110316
  3. SERTRALINE [Concomitant]
     Indication: DEPRESSION
     Dosage: 50 MG, QD
     Route: 048
     Dates: start: 20110119
  4. QUETIAPINE [Concomitant]
     Indication: DEPRESSION
     Dosage: 100 MG, TID
     Route: 048
     Dates: start: 20110119
  5. CYMBALTA [Concomitant]
     Indication: DEPRESSION
     Dosage: 60 MG, QD
     Route: 048
  6. TRIAMCINOLONE [Concomitant]
     Indication: SKIN DISORDER
     Dosage: UNK
     Route: 061
     Dates: start: 20110316
  7. TRAZODONE [Concomitant]
     Indication: DEPRESSION
     Dosage: 100 MG, QHS
     Route: 048
  8. RALOXIFENE [Concomitant]
     Indication: PROPHYLAXIS
     Dosage: 60 MG, UNK
     Route: 048
  9. LEVOTHYROXINE [Concomitant]
     Indication: THYROID DISORDER
     Dosage: 150 ?G, QD
     Route: 048
  10. VITAMIN D3 [Concomitant]
     Indication: VITAMIN D DEFICIENCY
     Dosage: UNK
     Route: 048
     Dates: start: 20110223
  11. FERROUS SULFATE [Concomitant]
     Indication: ANAEMIA
     Dosage: 65 MG, BID
     Route: 048
     Dates: start: 20110223

REACTIONS (1)
  - Overdose [Recovered/Resolved]
